FAERS Safety Report 16954341 (Version 1)
Quarter: 2019Q4

REPORT INFORMATION
  Report Type: Spontaneous
  Country: CA (occurrence: CA)
  Receive Date: 20191023
  Receipt Date: 20191023
  Transmission Date: 20200122
  Serious: Yes (Hospitalization, Other)
  Sender: FDA-Public Use
  Company Number: CA-TEVA-2019-CA-1124663

PATIENT
  Age: 39 Year
  Sex: Female

DRUGS (10)
  1. PREDNISONE. [Concomitant]
     Active Substance: PREDNISONE
  2. SPIRIVA [Concomitant]
     Active Substance: TIOTROPIUM BROMIDE MONOHYDRATE
  3. ZENHALE [Concomitant]
     Active Substance: FORMOTEROL FUMARATE\MOMETASONE FUROATE
  4. AZITHROMYCIN ANHYDROUS. [Suspect]
     Active Substance: AZITHROMYCIN ANHYDROUS
     Indication: PRODUCT USED FOR UNKNOWN INDICATION
     Route: 065
  5. POTASSIUM ACETATE. [Suspect]
     Active Substance: POTASSIUM ACETATE
     Indication: PRODUCT USED FOR UNKNOWN INDICATION
     Route: 065
  6. XOLAIR [Suspect]
     Active Substance: OMALIZUMAB
     Indication: ASTHMA
     Route: 058
  7. VENTOLIN [Concomitant]
     Active Substance: ALBUTEROL SULFATE
  8. XOLAIR [Suspect]
     Active Substance: OMALIZUMAB
     Route: 058
  9. LEVAQUIN [Concomitant]
     Active Substance: LEVOFLOXACIN
  10. SINGULAIR [Concomitant]
     Active Substance: MONTELUKAST SODIUM

REACTIONS (19)
  - Asthma [Recovered/Resolved]
  - Bronchospasm [Recovered/Resolved]
  - Pharyngeal inflammation [Recovered/Resolved]
  - Productive cough [Recovered/Resolved]
  - Candida infection [Recovered/Resolved]
  - Heart rate increased [Recovered/Resolved]
  - Peritonsillar abscess [Recovered/Resolved]
  - Pilonidal cyst [Recovered/Resolved]
  - Dyspnoea [Recovered/Resolved]
  - Wheezing [Recovered/Resolved]
  - Oxygen saturation decreased [Recovered/Resolved]
  - Respiratory rate increased [Recovered/Resolved]
  - Therapy partial responder [Recovered/Resolved]
  - Cerebrovascular accident [Recovered/Resolved]
  - Inappropriate schedule of product administration [Recovered/Resolved]
  - Postoperative wound complication [Recovered/Resolved]
  - Hemiplegia [Recovered/Resolved]
  - Pulmonary pain [Recovered/Resolved]
  - Rhonchi [Recovered/Resolved]
